FAERS Safety Report 19969086 (Version 11)
Quarter: 2025Q4

REPORT INFORMATION
  Report Type: Spontaneous
  Country: CA (occurrence: CA)
  Receive Date: 20211019
  Receipt Date: 20251119
  Transmission Date: 20260118
  Serious: Yes (Other)
  Sender: PFIZER
  Company Number: CA-PFIZER INC-202101317694

PATIENT
  Age: 42 Year
  Sex: Male

DRUGS (35)
  1. SOMAVERT [Suspect]
     Active Substance: PEGVISOMANT
     Indication: Acromegaly
     Dosage: 10 MG, 1X/DAY
     Route: 058
     Dates: start: 20180723, end: 2018
  2. SOMAVERT [Suspect]
     Active Substance: PEGVISOMANT
     Dosage: 20 MG, 1X/DAY
     Route: 058
     Dates: start: 2018, end: 20181122
  3. SOMAVERT [Suspect]
     Active Substance: PEGVISOMANT
     Dosage: 20 MG, 1X/DAY
     Route: 058
     Dates: start: 2018, end: 2019
  4. SOMAVERT [Suspect]
     Active Substance: PEGVISOMANT
     Dosage: 25 MG, 1X/DAY DISCONTINUED
     Route: 058
     Dates: start: 2019
  5. SOMAVERT [Suspect]
     Active Substance: PEGVISOMANT
     Dosage: 30 MG, 1X/DAY
     Route: 058
     Dates: start: 2019, end: 2024
  6. SOMAVERT [Suspect]
     Active Substance: PEGVISOMANT
     Dosage: 30 MG, EVERY 2 DAYS
     Route: 058
     Dates: start: 20240417
  7. SOMAVERT [Suspect]
     Active Substance: PEGVISOMANT
     Dosage: 30 MG, EVERY 2 DAY
     Route: 058
     Dates: start: 2024
  8. SOMAVERT [Suspect]
     Active Substance: PEGVISOMANT
     Dosage: 25 MG, EVERY 2 DAY
     Route: 058
  9. SOMAVERT [Suspect]
     Active Substance: PEGVISOMANT
     Dosage: 25 MG TWICE A WEEK ( MONDAY AND FRIDAY)
     Route: 058
  10. ANDROGEL [Concomitant]
     Active Substance: TESTOSTERONE
     Dosage: 5 G, DAILY (1% 5G QDAY)
  11. ANDROGEL [Concomitant]
     Active Substance: TESTOSTERONE
     Dosage: UNK (^10)
  12. CABERGOLINE [Concomitant]
     Active Substance: CABERGOLINE
     Dosage: 1 DF, UNK DOSE AND STATUS
  13. CANDESARTAN [Concomitant]
     Active Substance: CANDESARTAN
     Dosage: UNK (8^)
  14. CORTISONE [Concomitant]
     Active Substance: CORTISONE
     Dosage: UNK (12.5-12.5)
  15. COVERSYL ARGI PLUS [Concomitant]
     Dosage: 4 MG, 1X/DAY (4MG/1.25MG), PO QDAY
     Route: 048
  16. COVERSYL ARGI PLUS [Concomitant]
     Dosage: 1.25 MG, 1X/DAY (4MG/1.25MG PO QDAY)
     Route: 048
  17. DESMOPRESSIN [Concomitant]
     Active Substance: DESMOPRESSIN
     Dosage: UNK, 2X/DAY (0.1)
  18. DILTIAZEM [Concomitant]
     Active Substance: DILTIAZEM
     Dosage: UNK (SR 120^)
  19. DOSTINEX [Concomitant]
     Active Substance: CABERGOLINE
     Dosage: 0.25 MG, WEEKLY X2 DOSES, THEN 0.5MG/WEEK
  20. DOSTINEX [Concomitant]
     Active Substance: CABERGOLINE
     Dosage: 0.5 MG, WEEKLY
  21. FAMCICLOVIR [Concomitant]
     Active Substance: FAMCICLOVIR
     Dosage: UNK (250^2)
  22. FENOFIBRATE [Concomitant]
     Active Substance: FENOFIBRATE
     Dosage: UNK (100^)
  23. IMODIUM [Concomitant]
     Active Substance: LOPERAMIDE HYDROCHLORIDE
     Dosage: UNK
  24. LOPROX [Concomitant]
     Active Substance: CICLOPIROX\CICLOPIROX OLAMINE
     Dosage: UNK, 1X/DAY (TO GROIN QDAY PRN)/5% CREAM TO GROIN QDAY PRN
  25. MOMETASONE [Concomitant]
     Active Substance: MOMETASONE
     Dosage: 50 UG, 1X/DAY (2 SPRAYS IN EACH NOSTRIL PRN)/ (50MCG 2 SPRAYS IN EACH NOSTRIL QDAY PRN)
  26. MTF [Concomitant]
     Dosage: UNK (500^2)
  27. OCTREOTIDE [Concomitant]
     Active Substance: OCTREOTIDE
     Dosage: 30 MG, EVERY 4 WEEKS
  28. SIGNIFOR LAR [Concomitant]
     Active Substance: PASIREOTIDE PAMOATE
     Dosage: UNK
  29. SIGNIFOR LAR [Concomitant]
     Active Substance: PASIREOTIDE PAMOATE
     Dosage: UNK (40 MG, Q 4 W)
  30. SIGNIFOR LAR [Concomitant]
     Active Substance: PASIREOTIDE PAMOATE
     Dosage: 60 MG, Q 4 WEEKS FOR 12 MONTHS (INCREASED)
     Route: 030
  31. SPIRONOLACTONE [Concomitant]
     Active Substance: SPIRONOLACTONE
     Dosage: 25 MG
  32. SPIRONOLACTONE [Concomitant]
     Active Substance: SPIRONOLACTONE
     Dosage: UNK (50^)
  33. VALACYCLOVIR HYDROCHLORIDE [Concomitant]
     Active Substance: VALACYCLOVIR HYDROCHLORIDE
     Indication: Nodule
     Dosage: 250 MG, 2X/DAY (WHEN LESIONS ARE ACTIVE AT LIPS), PRN
     Route: 048
  34. VITAMIN D NOS [Concomitant]
     Active Substance: CHOLECALCIFEROL\ERGOCALCIFEROL
     Dosage: UNK, WEEKLY (10000)
  35. ZOCOR [Concomitant]
     Active Substance: SIMVASTATIN
     Dosage: UNK (20)

REACTIONS (10)
  - Sleep apnoea syndrome [Unknown]
  - Therapeutic product effect incomplete [Unknown]
  - Hypertension [Not Recovered/Not Resolved]
  - Fatigue [Not Recovered/Not Resolved]
  - Blood testosterone decreased [Unknown]
  - Dysuria [Unknown]
  - Arthralgia [Unknown]
  - Diarrhoea [Unknown]
  - Blood sodium decreased [Unknown]
  - Off label use [Unknown]

NARRATIVE: CASE EVENT DATE: 20180822
